FAERS Safety Report 4914932-9 (Version None)
Quarter: 2006Q1

REPORT INFORMATION
  Report Type: 
  Country: None (occurrence: None)
  Receive Date: 20060215
  Receipt Date: 20060215
  Transmission Date: 20060701
  Serious: Yes (Hospitalization)
  Sender: FDA-Public Use
  Company Number: None

PATIENT
  Sex: Female

DRUGS (5)
  1. HYDROCODONE BITARTRATE [Suspect]
     Indication: ARTHRITIS
     Dosage: PO [PRIOR TO ADMISSION]
     Route: 048
  2. HYDROCODONE BITARTRATE [Suspect]
     Indication: PAIN IN EXTREMITY
     Dosage: PO [PRIOR TO ADMISSION]
     Route: 048
  3. AVAPRO [Concomitant]
  4. NEXIUM [Concomitant]
  5. SYNTHROID [Concomitant]

REACTIONS (4)
  - DIZZINESS [None]
  - FALL [None]
  - HYPERHIDROSIS [None]
  - SYNCOPE [None]
